FAERS Safety Report 5610995-6 (Version None)
Quarter: 2008Q1

REPORT INFORMATION
  Report Type: 
  Country: None (occurrence: None)
  Receive Date: 20080201
  Receipt Date: 20080124
  Transmission Date: 20080703
  Serious: Yes (Other)
  Sender: FDA-Public Use
  Company Number: A0705194A

PATIENT
  Age: 57 Year
  Sex: Female

DRUGS (5)
  1. ADVAIR DISKUS 100/50 [Suspect]
     Indication: CHRONIC OBSTRUCTIVE PULMONARY DISEASE
     Dosage: 1PUFF TWICE PER DAY
     Route: 055
     Dates: start: 20060701, end: 20080102
  2. ALBUTEROL [Concomitant]
  3. ALBUTEROL [Concomitant]
  4. OXYGEN [Concomitant]
  5. WELLBUTRIN [Concomitant]

REACTIONS (4)
  - GLARE [None]
  - INTRAOCULAR PRESSURE INCREASED [None]
  - NIGHT BLINDNESS [None]
  - VISION BLURRED [None]
